FAERS Safety Report 6354821-9 (Version None)
Quarter: 2009Q3

REPORT INFORMATION
  Report Type: 
  Country: None (occurrence: None)
  Receive Date: 20090914
  Receipt Date: 20090904
  Transmission Date: 20100115
  Serious: Yes (Other)
  Sender: FDA-Public Use
  Company Number: GB-JNJFOC-20090502598

PATIENT
  Sex: Male
  Weight: 97 kg

DRUGS (5)
  1. PREZISTA [Suspect]
     Indication: HIV INFECTION
     Route: 048
     Dates: start: 20080220
  2. INTELENCE [Suspect]
     Indication: HIV INFECTION
     Route: 048
     Dates: start: 20080220
  3. RITONAVIR [Suspect]
     Indication: HIV INFECTION
     Route: 065
     Dates: start: 20080220
  4. RALTEGRAVIR [Suspect]
     Indication: HIV INFECTION
     Route: 065
     Dates: start: 20080220
  5. LORATADINE [Concomitant]
     Route: 065

REACTIONS (1)
  - WEIGHT INCREASED [None]
